FAERS Safety Report 15811489 (Version 1)
Quarter: 2019Q1

REPORT INFORMATION
  Report Type: Spontaneous
  Country: TR (occurrence: TR)
  Receive Date: 20190111
  Receipt Date: 20190111
  Transmission Date: 20190417
  Serious: Yes (Death, Other)
  Sender: FDA-Public Use
  Company Number: TR-TOLMAR, INC.-2019TR000266

PATIENT

DRUGS (5)
  1. ZOLEDRONIC ACID [Concomitant]
     Active Substance: ZOLEDRONIC ACID
  2. DOCETAXEL. [Concomitant]
     Active Substance: DOCETAXEL
  3. PREDNISOLONE. [Concomitant]
     Active Substance: PREDNISOLONE
  4. CYPROTERONE [Concomitant]
     Active Substance: CYPROTERONE
  5. ELIGARD [Suspect]
     Active Substance: LEUPROLIDE ACETATE
     Indication: PROSTATE CANCER
     Dosage: UNK, UNK
     Route: 065

REACTIONS (3)
  - Death [Fatal]
  - Hormone-refractory prostate cancer [Unknown]
  - Skin cancer metastatic [Unknown]
